FAERS Safety Report 6023575-8 (Version None)
Quarter: 2008Q4

REPORT INFORMATION
  Report Type: 
  Country: None (occurrence: None)
  Receive Date: 20081226
  Receipt Date: 20081226
  Transmission Date: 20090506
  Serious: Yes (Other)
  Sender: FDA-Public Use
  Company Number: None

PATIENT
  Sex: Male
  Weight: 115.6672 kg

DRUGS (1)
  1. PROAIR HFA [Suspect]
     Indication: ASTHMA

REACTIONS (3)
  - DRUG EFFECT DECREASED [None]
  - ECONOMIC PROBLEM [None]
  - PRODUCT QUALITY ISSUE [None]
